FAERS Safety Report 22203061 (Version 4)
Quarter: 2023Q2

REPORT INFORMATION
  Report Type: Spontaneous
  Country: BG (occurrence: BG)
  Receive Date: 20230412
  Receipt Date: 20230623
  Transmission Date: 20230721
  Serious: Yes (Hospitalization, Other)
  Sender: FDA-Public Use
  Company Number: None

PATIENT
  Age: 85 Year
  Sex: Male

DRUGS (2)
  1. METFORMIN [Suspect]
     Active Substance: METFORMIN HYDROCHLORIDE
     Indication: Type 2 diabetes mellitus
     Dosage: 2 GRAM, QD,(DAILY)
     Route: 065
  2. ASPIRIN [Concomitant]
     Active Substance: ASPIRIN
     Indication: Product used for unknown indication
     Dosage: UNK
     Route: 065

REACTIONS (8)
  - Renal impairment [Unknown]
  - Hyperkalaemia [Unknown]
  - Normochromic normocytic anaemia [Unknown]
  - Mitral valve incompetence [Unknown]
  - Toxicity to various agents [Unknown]
  - Coronary artery disease [Unknown]
  - Sinus rhythm [Unknown]
  - Troponin increased [Unknown]
